FAERS Safety Report 9173535 (Version 1)
Quarter: 2013Q1

REPORT INFORMATION
  Report Type: Spontaneous
  Country: US (occurrence: None)
  Receive Date: 20130318
  Receipt Date: 20130318
  Transmission Date: 20140127
  Serious: No
  Sender: FDA-Public Use
  Company Number: None

PATIENT
  Age: 63 Year
  Sex: Male

DRUGS (1)
  1. IRBESARTAN [Suspect]
     Indication: HYPERTENSION
     Dosage: IRBESARTAN 75MG 1/2 TAB QD
     Dates: start: 20130212

REACTIONS (4)
  - Pain in extremity [None]
  - Local swelling [None]
  - Gait disturbance [None]
  - Product substitution issue [None]
